FAERS Safety Report 18667384 (Version 1)
Quarter: 2020Q4

REPORT INFORMATION
  Report Type: Spontaneous
  Country: US (occurrence: US)
  Receive Date: 20201228
  Receipt Date: 20201228
  Transmission Date: 20210114
  Serious: No
  Sender: FDA-Public Use
  Company Number: US-AUROBINDO-AUR-APL-2020-047478

PATIENT

DRUGS (3)
  1. BUPIVACAINE HYDROCHLORIDE INJECTION USP 0.25% (2.5 MG/ML) [Suspect]
     Active Substance: BUPIVACAINE HYDROCHLORIDE
     Dosage: UNK
     Route: 065
  2. BUPIVACAINE HYDROCHLORIDE INJECTION USP 0.25% (2.5 MG/ML) [Suspect]
     Active Substance: BUPIVACAINE HYDROCHLORIDE
     Indication: SURGERY
     Dosage: UNK
     Route: 065
  3. LIDOCAINE HYDROCHLORIDE INJECTION USP 1%(10 MG/ML) [Suspect]
     Active Substance: LIDOCAINE HYDROCHLORIDE
     Indication: SURGERY
     Dosage: UNK
     Route: 065

REACTIONS (2)
  - Extra dose administered [Unknown]
  - Drug ineffective [Unknown]
